FAERS Safety Report 7497652-9 (Version None)
Quarter: 2011Q2

REPORT INFORMATION
  Report Type: 
  Country: None (occurrence: None)
  Receive Date: 20110523
  Receipt Date: 20110512
  Transmission Date: 20111010
  Serious: Yes (Other)
  Sender: FDA-Public Use
  Company Number: PHHY2011US41012

PATIENT
  Age: 62 Year
  Sex: Female
  Weight: 134.69 kg

DRUGS (11)
  1. ASPIRIN [Concomitant]
     Dosage: 81 MG/DAY
  2. ONDANSETRON [Suspect]
  3. ESCITALOPRAM [Concomitant]
     Dosage: 10 MG, UNK
  4. HEPARIN [Concomitant]
     Indication: THROMBOSIS PROPHYLAXIS
     Route: 058
  5. CARBON DIOXIDE [Concomitant]
     Dosage: 15 MM HG
  6. NORTRIPTYLINE HCL [Suspect]
     Dosage: 25 MG, UNK
  7. SUCCINYLCHLOLINE CHLORIDE INJ [Suspect]
  8. THROMBIN LOCAL SOLUTION [Concomitant]
  9. TOPIRAMATE [Concomitant]
     Dosage: 25 MG, UNK
  10. ATORVASTATIN [Concomitant]
     Dosage: 20 MG, UNK
  11. SURGICEL ABSORBABLE HEMOSTATIC CONE [Concomitant]

REACTIONS (6)
  - CARDIAC ARREST [None]
  - PULSE ABSENT [None]
  - HAEMORRHAGE [None]
  - SINUS BRADYCARDIA [None]
  - VENTRICULAR TACHYCARDIA [None]
  - LONG QT SYNDROME [None]
